FAERS Safety Report 6095643-6 (Version None)
Quarter: 2009Q1

REPORT INFORMATION
  Report Type: 
  Country: None (occurrence: None)
  Receive Date: 20090227
  Receipt Date: 20080606
  Transmission Date: 20090719
  Serious: No
  Sender: FDA-Public Use
  Company Number: A0727711A

PATIENT
  Age: 53 Year
  Sex: Female
  Weight: 51.8 kg

DRUGS (6)
  1. LAMICTAL [Suspect]
     Indication: MOOD SWINGS
     Dosage: 75MG PER DAY
     Route: 048
     Dates: start: 20080301
  2. WELLBUTRIN [Concomitant]
     Route: 048
  3. INVEGA [Concomitant]
  4. CLONAZEPAM [Concomitant]
  5. HERBAL SUPPLEMENTS [Concomitant]
  6. VITAMINS [Concomitant]

REACTIONS (1)
  - ANGER [None]
